FAERS Safety Report 16480148 (Version 1)
Quarter: 2019Q2

REPORT INFORMATION
  Report Type: Spontaneous
  Country: JP (occurrence: JP)
  Receive Date: 20190626
  Receipt Date: 20190626
  Transmission Date: 20190711
  Serious: Yes (Other)
  Sender: FDA-Public Use
  Company Number: JP-PURDUE-GBR-2019-0066984

PATIENT
  Age: 43 Year
  Sex: Female

DRUGS (1)
  1. NORSPAN [Suspect]
     Active Substance: BUPRENORPHINE
     Indication: BACK PAIN
     Dosage: 10 MCG, Q1H (STRENGTH 10 MG)
     Route: 062

REACTIONS (1)
  - Fracture [Unknown]
